FAERS Safety Report 6186173-1 (Version None)
Quarter: 2009Q2

REPORT INFORMATION
  Report Type: 
  Country: None (occurrence: None)
  Receive Date: 20090511
  Receipt Date: 20090427
  Transmission Date: 20091009
  Serious: Yes (Disabling)
  Sender: FDA-Public Use
  Company Number: JP-PFIZER INC-2009206486

PATIENT
  Age: 60 Year

DRUGS (3)
  1. MIGLITOL [Suspect]
     Indication: TYPE 2 DIABETES MELLITUS
     Dosage: UNK
     Route: 048
     Dates: start: 20080502, end: 20080710
  2. ASPIRIN [Suspect]
     Dosage: UNK
     Route: 048
     Dates: start: 20071113, end: 20080710
  3. AMARYL [Concomitant]
     Indication: TYPE 2 DIABETES MELLITUS
     Dosage: 1 MG, UNK
     Route: 048
     Dates: end: 20080710

REACTIONS (1)
  - GASTRIC CANCER [None]
